FAERS Safety Report 4284705-1 (Version None)
Quarter: 2004Q1

REPORT INFORMATION
  Report Type: 
  Country: None (occurrence: None)
  Receive Date: 20040130
  Receipt Date: 20040120
  Transmission Date: 20041129
  Serious: Yes (Hospitalization)
  Sender: FDA-Public Use
  Company Number: CA-JNJFOC-20040101468

PATIENT
  Age: 70 Year
  Sex: Female

DRUGS (10)
  1. LEVOFLOXACIN [Suspect]
     Indication: VENTRICULAR TACHYCARDIA
     Dosage: 500 MG, 1IN 1 DAY, ORAL
     Route: 048
  2. METHADONE HCL [Concomitant]
  3. HYDROMORPHONE HCL [Concomitant]
  4. HYZAAR [Concomitant]
  5. LOVASTATIN [Concomitant]
  6. PANTOLOC (PANTOPRAZOLE) [Concomitant]
  7. ASPIRIN [Concomitant]
  8. SENECOT (SENNA) [Concomitant]
  9. OXYBUTYNIN [Concomitant]
  10. DOCUSATE (DUCUSATE) [Concomitant]

REACTIONS (6)
  - AGGRESSION [None]
  - ATRIOVENTRICULAR BLOCK [None]
  - COMA [None]
  - DELIRIUM [None]
  - HYPOTENSION [None]
  - VENTRICULAR TACHYCARDIA [None]
